FAERS Safety Report 23064929 (Version 2)
Quarter: 2023Q4

REPORT INFORMATION
  Report Type: Spontaneous
  Country: US (occurrence: US)
  Receive Date: 20231013
  Receipt Date: 20231115
  Transmission Date: 20240110
  Serious: No
  Sender: FDA-Public Use
  Company Number: US-PFIZER INC-2020218209

PATIENT
  Age: 58 Year
  Sex: Female
  Weight: 88.45 kg

DRUGS (4)
  1. PREMARIN [Suspect]
     Active Substance: ESTROGENS, CONJUGATED
     Indication: Hysterectomy
     Dosage: 0.9 MG, 1X/DAY
     Route: 048
     Dates: start: 1994
  2. PREMARIN [Suspect]
     Active Substance: ESTROGENS, CONJUGATED
     Indication: Hormone replacement therapy
     Dosage: UNK, ALTERNATE DAY (TAKING THIS EVERY OTHER DAY)
  3. PREMARIN [Suspect]
     Active Substance: ESTROGENS, CONJUGATED
     Dosage: UNK (3 TABLETS LEFT AND TOOK IT EVERY 3-4 DAYS)
  4. PREMARIN [Suspect]
     Active Substance: ESTROGENS, CONJUGATED
     Dosage: START TAKING IT EVERY OTHER DAY

REACTIONS (3)
  - Blood pressure increased [Unknown]
  - Intentional product misuse [Unknown]
  - Product prescribing issue [Unknown]
